FAERS Safety Report 6517986-1 (Version None)
Quarter: 2009Q4

REPORT INFORMATION
  Report Type: 
  Country: None (occurrence: None)
  Receive Date: 20091223
  Receipt Date: 20091223
  Transmission Date: 20100525
  Serious: Yes (Disabling)
  Sender: FDA-Public Use
  Company Number: None

PATIENT
  Age: 26 Year
  Sex: Female
  Weight: 61.2356 kg

DRUGS (1)
  1. CLEAR CARE NOT KNOWN CIBA VISION [Suspect]
     Indication: CORRECTIVE LENS USER
     Dosage: OPHTHALMIC
     Route: 047
     Dates: start: 20091219, end: 20091220

REACTIONS (5)
  - CHEMICAL BURNS OF EYE [None]
  - EYE IRRITATION [None]
  - EYE PAIN [None]
  - MEDICATION ERROR [None]
  - PRODUCT LABEL CONFUSION [None]
